FAERS Safety Report 10085820 (Version 1)
Quarter: 2014Q2

REPORT INFORMATION
  Report Type: Spontaneous
  Country: US (occurrence: US)
  Receive Date: 20140418
  Receipt Date: 20140418
  Transmission Date: 20141212
  Serious: No
  Sender: FDA-Public Use
  Company Number: US-PFIZER INC-2014104807

PATIENT
  Sex: Female

DRUGS (6)
  1. MORPHINE SULFATE [Suspect]
     Dosage: UNK
  2. MEDROL [Suspect]
     Dosage: UNK
  3. AXID AR [Suspect]
     Dosage: UNK
  4. CODEINE [Suspect]
     Dosage: UNK
  5. SULFUR [Suspect]
     Dosage: UNK
  6. PRIDINOL [Suspect]
     Dosage: UNK

REACTIONS (1)
  - Drug hypersensitivity [Unknown]
